FAERS Safety Report 8241113-6 (Version None)
Quarter: 2012Q1

REPORT INFORMATION
  Report Type: 
  Country: None (occurrence: None)
  Receive Date: 20120328
  Receipt Date: 20120322
  Transmission Date: 20120608
  Serious: Yes (Hospitalization)
  Sender: FDA-Public Use
  Company Number: FR-GLAXOSMITHKLINE-B0790413A

PATIENT
  Age: 55 Year
  Sex: Male

DRUGS (6)
  1. VALSARTAN  AND HYDROCHLOROTHIAZIDE [Concomitant]
     Dosage: 80MG PER DAY
     Route: 065
  2. ACETAMINOPHEN [Concomitant]
     Route: 065
  3. VENTOLIN [Concomitant]
     Route: 065
  4. ROPINIROLE HYDROCHLORIDE [Suspect]
     Indication: RESTLESS LEGS SYNDROME
     Route: 048
     Dates: start: 20101005, end: 20120126
  5. FLUTICASONE PROPIONATE/SALMETEROL [Concomitant]
     Route: 065
  6. SIMVASTATIN [Concomitant]
     Dosage: 20MG PER DAY
     Route: 065

REACTIONS (8)
  - PARANOIA [None]
  - SUICIDAL IDEATION [None]
  - PERSECUTORY DELUSION [None]
  - PSYCHOTIC DISORDER [None]
  - ALCOHOLISM [None]
  - HALLUCINATIONS, MIXED [None]
  - HYPERSEXUALITY [None]
  - AGGRESSION [None]
